FAERS Safety Report 5063931-8 (Version None)
Quarter: 2006Q3

REPORT INFORMATION
  Report Type: 
  Country: None (occurrence: None)
  Receive Date: 20060727
  Receipt Date: 20060719
  Transmission Date: 20061208
  Serious: Yes (Disabling)
  Sender: FDA-Public Use
  Company Number: AU-BOEHRINGER INGELHEIM PHARMACEUTICALS, INC.-2006-BP-08636AU

PATIENT
  Sex: Female
  Weight: 56 kg

DRUGS (1)
  1. MOBIC [Suspect]
     Indication: OSTEOARTHRITIS
     Route: 048
     Dates: start: 20060518, end: 20060703

REACTIONS (4)
  - ABDOMINAL TENDERNESS [None]
  - DYSPHAGIA [None]
  - HAEMOPTYSIS [None]
  - OESOPHAGEAL ULCER [None]
